FAERS Safety Report 6791272-7 (Version None)
Quarter: 2010Q2

REPORT INFORMATION
  Report Type: 
  Country: None (occurrence: None)
  Receive Date: 20100624
  Receipt Date: 20100621
  Transmission Date: 20101027
  Serious: Yes (Death, Life-Threatening, Hospitalization)
  Sender: FDA-Public Use
  Company Number: US-CELGENEUS-163-21880-10062054

PATIENT
  Sex: Male
  Weight: 85 kg

DRUGS (4)
  1. REVLIMID [Suspect]
     Indication: MULTIPLE MYELOMA
     Route: 048
     Dates: start: 20091113, end: 20091122
  2. VELCADE [Suspect]
     Indication: MULTIPLE MYELOMA
     Route: 051
     Dates: start: 20091113, end: 20091124
  3. DECADRON [Suspect]
     Indication: MULTIPLE MYELOMA
     Route: 048
     Dates: start: 20091113, end: 20091120
  4. DECADRON [Suspect]
     Route: 048
     Dates: start: 20091101

REACTIONS (2)
  - MULTIPLE MYELOMA [None]
  - SEPTIC SHOCK [None]
